FAERS Safety Report 10141932 (Version 2)
Quarter: 2014Q3

REPORT INFORMATION
  Report Type: Spontaneous
  Country: US (occurrence: US)
  Receive Date: 20140429
  Receipt Date: 20140707
  Transmission Date: 20150326
  Serious: No
  Sender: FDA-Public Use
  Company Number: US-TEVA-478537USA

PATIENT
  Age: 49 Year
  Sex: Female
  Weight: 56.3 kg

DRUGS (2)
  1. PARAGARD T380A [Suspect]
     Active Substance: COPPER
     Indication: CONTRACEPTION
     Route: 015
     Dates: start: 20140415, end: 20140425
  2. SYNTHROID [Concomitant]
     Active Substance: LEVOTHYROXINE SODIUM
     Indication: HYPOTHYROIDISM

REACTIONS (3)
  - Vaginal haemorrhage [Recovered/Resolved with Sequelae]
  - Dysmenorrhoea [Recovered/Resolved with Sequelae]
  - Device expulsion [Recovered/Resolved]

NARRATIVE: CASE EVENT DATE: 20140425
